FAERS Safety Report 18404383 (Version 2)
Quarter: 2020Q4

REPORT INFORMATION
  Report Type: Spontaneous
  Country: DE (occurrence: DE)
  Receive Date: 20201020
  Receipt Date: 20201127
  Transmission Date: 20210114
  Serious: Yes (Other)
  Sender: FDA-Public Use
  Company Number: DE-ASTRAZENECA-2020SF32580

PATIENT
  Age: 47 Year
  Sex: Female
  Weight: 57 kg

DRUGS (6)
  1. FASENRA [Suspect]
     Active Substance: BENRALIZUMAB
     Indication: ASTHMA
     Route: 058
     Dates: start: 20180226
  2. PARACETAMOL [Concomitant]
     Active Substance: ACETAMINOPHEN
  3. FASENRA [Suspect]
     Active Substance: BENRALIZUMAB
     Indication: ASTHMA
     Dosage: RECEIVED THE LAST INJECTION ON 11-FEB-2020
     Route: 058
     Dates: end: 20200211
  4. FLUCONAZOLE. [Concomitant]
     Active Substance: FLUCONAZOLE
     Dosage: 2 X 100 MG, UNKNOWN
     Dates: end: 201907
  5. IBUPROFEN. [Concomitant]
     Active Substance: IBUPROFEN
  6. FASENRA [Suspect]
     Active Substance: BENRALIZUMAB
     Indication: ASTHMA
     Route: 058
     Dates: end: 202004

REACTIONS (19)
  - Blood immunoglobulin E increased [Recovering/Resolving]
  - Sinus polyp [Unknown]
  - Sinus disorder [Unknown]
  - Rash [Unknown]
  - Aspergillus infection [Not Recovered/Not Resolved]
  - Nasal polyps [Unknown]
  - Productive cough [Unknown]
  - Respiratory tract infection [Unknown]
  - Intentional product misuse [Unknown]
  - Asthma [Unknown]
  - Foot deformity [Not Recovered/Not Resolved]
  - Pectus excavatum [Unknown]
  - Weight decreased [Recovered/Resolved]
  - Influenza [Unknown]
  - Hypermobility syndrome [Recovering/Resolving]
  - Chronic sinusitis [Unknown]
  - Osteochondrosis [Unknown]
  - Fatigue [Unknown]
  - Taste disorder [Unknown]

NARRATIVE: CASE EVENT DATE: 2010
